FAERS Safety Report 24262505 (Version 2)
Quarter: 2024Q3

REPORT INFORMATION
  Report Type: Report from Study
  Country: US (occurrence: US)
  Receive Date: 20240829
  Receipt Date: 20240930
  Transmission Date: 20241016
  Serious: Yes (Other)
  Sender: ROCHE
  Company Number: US-ROCHE-3565229

PATIENT
  Age: 31 Year
  Sex: Female
  Weight: 79.83 kg

DRUGS (17)
  1. OCREVUS [Suspect]
     Active Substance: OCRELIZUMAB
     Indication: Relapsing-remitting multiple sclerosis
     Dosage: SINGLE VIAL? DOT:  (01/JUL//2022, 18/JUL/2022, 12/MAR/2023, 03/AUG/2023, 30/JAN/2023, 07/AUG/2023, 0
     Route: 065
     Dates: start: 20220711
  2. OCREVUS [Suspect]
     Active Substance: OCRELIZUMAB
     Dosage: STRENGTH: 30 MG/ML (PRESCRIBED ON: 31/AUG/2023)
     Route: 042
  3. DIAZEPAM [Concomitant]
     Active Substance: DIAZEPAM
  4. ACETAMINOPHEN [Concomitant]
     Active Substance: ACETAMINOPHEN
  5. METHOCARBAMOL [Concomitant]
     Active Substance: METHOCARBAMOL
  6. IBUPROFEN [Concomitant]
     Active Substance: IBUPROFEN
  7. NEXPLANON [Concomitant]
     Active Substance: ETONOGESTREL
  8. OMEGA-3 FATTY ACIDS [Concomitant]
     Active Substance: OMEGA-3 FATTY ACIDS
  9. PRAMIPEXOLE [Concomitant]
     Active Substance: PRAMIPEXOLE\PRAMIPEXOLE DIHYDROCHLORIDE
  10. RITALIN [Concomitant]
     Active Substance: METHYLPHENIDATE HYDROCHLORIDE
  11. SUMATRIPTAN [Concomitant]
     Active Substance: SUMATRIPTAN\SUMATRIPTAN SUCCINATE
  12. TOPIRAMATE [Concomitant]
     Active Substance: TOPIRAMATE
  13. VITAMIN D3 [Concomitant]
     Active Substance: CHOLECALCIFEROL
  14. PREDNISONE [Concomitant]
     Active Substance: PREDNISONE
  15. METHYLPHENIDATE [Concomitant]
     Active Substance: METHYLPHENIDATE
  16. TRAZODONE [Concomitant]
     Active Substance: TRAZODONE HYDROCHLORIDE
  17. MODERNA COVID-19 VACCINE [Concomitant]
     Active Substance: ELASOMERAN

REACTIONS (9)
  - Paraesthesia [Unknown]
  - Multiple sclerosis [Unknown]
  - Drug ineffective [Unknown]
  - Discomfort [Unknown]
  - Restless legs syndrome [Unknown]
  - Back pain [Unknown]
  - Visual impairment [Unknown]
  - Hyperemesis gravidarum [Unknown]
  - Product prescribing error [Unknown]
